FAERS Safety Report 8316523-9 (Version None)
Quarter: 2012Q2

REPORT INFORMATION
  Report Type: 
  Country: None (occurrence: None)
  Receive Date: 20120427
  Receipt Date: 20120417
  Transmission Date: 20120825
  Serious: Yes (Hospitalization, Other)
  Sender: FDA-Public Use
  Company Number: PHHY2012DE028162

PATIENT
  Sex: Male
  Weight: 70 kg

DRUGS (17)
  1. NEBIVOLOL [Concomitant]
     Indication: HYPERTENSION
     Dosage: 1 DF, QD
     Dates: start: 20090203
  2. NEBIVOLOL [Concomitant]
     Indication: CORONARY ARTERY DISEASE
  3. AMLODIPINE [Concomitant]
     Indication: HYPERTENSION
     Dosage: 1 DF, QD
     Dates: start: 20090203
  4. LEVOTHYROXINE SODIUM [Concomitant]
     Indication: HYPOTHYROIDISM
     Dosage: 1.5 DF, QD
  5. ASPIRIN [Concomitant]
     Indication: CORONARY ARTERY DISEASE
     Dosage: 1 DF, QD
  6. ANTIDEPRESSANTS [Concomitant]
  7. FLUVASTATIN [Suspect]
     Indication: HYPERLIPIDAEMIA
     Dosage: 1 DF, QD
     Route: 048
     Dates: start: 20090203
  8. ANGIOTENSIN II ANTAGONISTS [Concomitant]
     Dates: start: 20101021
  9. ALISKIREN [Suspect]
     Dosage: 300 MG, QD
     Route: 048
     Dates: start: 20090203
  10. EBRANTIL [Concomitant]
     Indication: HYPERTENSION
     Dosage: 2 DF, QD
     Dates: start: 20090203
  11. ACTRAPID HUMAN [Concomitant]
     Indication: DIABETES MELLITUS
     Dosage: 50 IU, UNK
     Route: 058
     Dates: start: 20090203
  12. LANTUS [Concomitant]
     Indication: DIABETES MELLITUS
     Dosage: 24 IU, UNK
     Route: 058
     Dates: start: 20090203
  13. ALISKIREN [Suspect]
     Indication: HYPERTENSION
     Dosage: 150 MG,DAILY
     Route: 048
     Dates: start: 20081124, end: 20090203
  14. EMESTAR PLUS [Concomitant]
     Indication: HYPERTENSION
     Dosage: 1 DF, QD
     Dates: start: 20090203
  15. THIENOPYRIDINES [Concomitant]
  16. ANTIADRENERGIC AGENTS, CENTRALLY ACTING [Concomitant]
     Dosage: UNK
     Dates: end: 20110404
  17. VASODILATORS USED IN CARDIAC DISEASES [Concomitant]
     Dates: start: 20110404

REACTIONS (6)
  - ELECTROCARDIOGRAM QT PROLONGED [None]
  - DYSPNOEA [None]
  - CORONARY ARTERY RESTENOSIS [None]
  - ANGINA PECTORIS [None]
  - ELECTROCARDIOGRAM QRS COMPLEX PROLONGED [None]
  - ELECTROCARDIOGRAM REPOLARISATION ABNORMALITY [None]
